FAERS Safety Report 22000571 (Version 1)
Quarter: 2023Q1

REPORT INFORMATION
  Report Type: Spontaneous
  Country: US (occurrence: None)
  Receive Date: 20230215
  Receipt Date: 20230215
  Transmission Date: 20230418
  Serious: Yes (Hospitalization)
  Sender: FDA-Public Use
  Company Number: None

PATIENT
  Age: 37 Year
  Sex: Male

DRUGS (13)
  1. MYCOPHENOLATE MOFETIL [Suspect]
     Active Substance: MYCOPHENOLATE MOFETIL
     Indication: Renal transplant
     Dosage: 1250 MG TWICE A DAY ORAL
     Route: 048
     Dates: start: 20230121, end: 20230208
  2. ENVARSUS XR [Suspect]
     Active Substance: TACROLIMUS
     Indication: Renal transplant
     Dosage: 10 UG DAILY ORAL
     Route: 048
     Dates: start: 20230121, end: 20230208
  3. Calcitriol 0.25mcg capsules [Concomitant]
  4. Vitamin D2 50,000 IU capsules [Concomitant]
  5. Oxycodone 10mg tablets (immediate release) [Concomitant]
  6. Hydrocodone/Acetaminophen 10/325mg tablets [Concomitant]
  7. Aspirin 81mg EC tablets [Concomitant]
  8. PREDNISONE [Concomitant]
     Active Substance: PREDNISONE
  9. PREDNISONE [Concomitant]
     Active Substance: PREDNISONE
  10. FAMOTIDINE [Concomitant]
     Active Substance: FAMOTIDINE
  11. Bactrim 400-80mg tablets [Concomitant]
  12. Valganciclovir 450mg tablets [Concomitant]
  13. ATORVASTATIN [Concomitant]
     Active Substance: ATORVASTATIN

REACTIONS (2)
  - Kidney transplant rejection [None]
  - Haemodialysis [None]

NARRATIVE: CASE EVENT DATE: 20230206
